FAERS Safety Report 8457016-8 (Version None)
Quarter: 2012Q2

REPORT INFORMATION
  Report Type: 
  Country: None (occurrence: None)
  Receive Date: 20120621
  Receipt Date: 20120608
  Transmission Date: 20120825
  Serious: No
  Sender: FDA-Public Use
  Company Number: US-ASTRAZENECA-2012SE38749

PATIENT
  Sex: Male
  Weight: 73.9 kg

DRUGS (3)
  1. VITAMIN TAB [Concomitant]
  2. PRILOSEC [Suspect]
     Indication: BARRETT'S OESOPHAGUS
     Route: 048
  3. CRESTOR [Concomitant]
     Indication: BLOOD CHOLESTEROL ABNORMAL

REACTIONS (4)
  - OFF LABEL USE [None]
  - ABDOMINAL PAIN UPPER [None]
  - HAEMOGLOBIN DECREASED [None]
  - VITAMIN D DECREASED [None]
